FAERS Safety Report 6645602-7 (Version None)
Quarter: 2010Q1

REPORT INFORMATION
  Report Type: 
  Country: None (occurrence: None)
  Receive Date: 20100319
  Receipt Date: 20100319
  Transmission Date: 20100710
  Serious: Yes (Life-Threatening, Hospitalization, Other)
  Sender: FDA-Public Use
  Company Number: None

PATIENT
  Age: 27 Year
  Sex: Male
  Weight: 90.7194 kg

DRUGS (1)
  1. SEROQUEL [Suspect]
     Dosage: TWICE A DAY
     Dates: start: 20060516, end: 20100308

REACTIONS (1)
  - ILL-DEFINED DISORDER [None]
